FAERS Safety Report 7902260-9 (Version None)
Quarter: 2011Q4

REPORT INFORMATION
  Report Type: 
  Country: None (occurrence: None)
  Receive Date: 20111108
  Receipt Date: 20111101
  Transmission Date: 20120403
  Serious: Yes (Other)
  Sender: FDA-Public Use
  Company Number: CA-UCBSA-030977

PATIENT
  Age: 50 Year
  Sex: Female

DRUGS (9)
  1. FERROUS SULFATE TAB [Concomitant]
     Indication: ANAEMIA
     Route: 048
  2. BENADRYL [Concomitant]
     Indication: PRURITUS
     Dosage: Q4-6H
     Route: 048
     Dates: start: 20101001
  3. VITAMIN B-12 [Concomitant]
     Indication: ANAEMIA
     Dosage: DOSE PER INTAKE : I;
     Route: 048
  4. CIMZIA [Suspect]
     Indication: RHEUMATOID ARTHRITIS
     Route: 058
     Dates: start: 20100528, end: 20100625
  5. FOLIC ACID [Concomitant]
     Indication: SUPPLEMENTATION THERAPY
     Dosage: OD 6/7
     Route: 048
     Dates: start: 20031101
  6. CIMZIA [Suspect]
     Route: 058
     Dates: start: 20100709
  7. ACETAMINOPHEN [Concomitant]
     Indication: ANALGESIC THERAPY
     Dosage: DOSE PER INTAKE : I-II; Q4-6H
     Route: 048
  8. PREDNISONE [Concomitant]
     Indication: RHEUMATOID ARTHRITIS
     Route: 048
     Dates: start: 20060201
  9. METHOTREXATE [Concomitant]
     Indication: RHEUMATOID ARTHRITIS
     Route: 058
     Dates: start: 20031101

REACTIONS (4)
  - NECK PAIN [None]
  - SINUS DISORDER [None]
  - CHEST PAIN [None]
  - MENORRHAGIA [None]
